FAERS Safety Report 13718612 (Version 2)
Quarter: 2017Q3

REPORT INFORMATION
  Report Type: Spontaneous
  Country: AR (occurrence: AR)
  Receive Date: 20170705
  Receipt Date: 20170707
  Transmission Date: 20171127
  Serious: Yes (Hospitalization, Other)
  Sender: FDA-Public Use
  Company Number: AR-PFIZER INC-2017287762

PATIENT
  Age: 61 Year
  Sex: Female

DRUGS (1)
  1. XELJANZ [Suspect]
     Active Substance: TOFACITINIB CITRATE
     Dosage: UNK
     Dates: start: 2014, end: 201604

REACTIONS (8)
  - Enteritis infectious [Unknown]
  - Abdominal pain [Unknown]
  - Peritonitis [Unknown]
  - Neoplasm [Unknown]
  - Stress cardiomyopathy [Unknown]
  - Diarrhoea [Unknown]
  - Rectal cancer [Unknown]
  - Vomiting [Unknown]

NARRATIVE: CASE EVENT DATE: 201512
